FAERS Safety Report 5028772-6 (Version None)
Quarter: 2006Q2

REPORT INFORMATION
  Report Type: 
  Country: None (occurrence: None)
  Receive Date: 20060501
  Receipt Date: 20060328
  Transmission Date: 20061013
  Serious: No
  Sender: FDA-Public Use
  Company Number: 200613020US

PATIENT
  Sex: Female

DRUGS (1)
  1. KETEK [Suspect]
     Indication: NASOPHARYNGITIS
     Dosage: 800 MG
     Dates: start: 20060307, end: 20060311

REACTIONS (5)
  - ASTHENIA [None]
  - CHILLS [None]
  - FATIGUE [None]
  - HYPERHIDROSIS [None]
  - MENTAL IMPAIRMENT [None]
